FAERS Safety Report 16413896 (Version 2)
Quarter: 2019Q2

REPORT INFORMATION
  Report Type: Report from Study
  Country: IT (occurrence: IT)
  Receive Date: 20190611
  Receipt Date: 20190628
  Transmission Date: 20190711
  Serious: Yes (Hospitalization)
  Sender: FDA-Public Use
  Company Number: IT-ACCORD-131845

PATIENT
  Age: 32 Year
  Sex: Male

DRUGS (3)
  1. AMLODIPINE [Suspect]
     Active Substance: AMLODIPINE BESYLATE
     Route: 048
     Dates: start: 20190106, end: 20190106
  2. CARBAMAZEPINE. [Suspect]
     Active Substance: CARBAMAZEPINE
     Route: 048
     Dates: start: 20190106, end: 20190106
  3. RAMIPRIL. [Suspect]
     Active Substance: RAMIPRIL
     Route: 048
     Dates: start: 20190106, end: 20190106

REACTIONS (7)
  - Sopor [Recovering/Resolving]
  - Wound [Recovering/Resolving]
  - Intentional self-injury [Unknown]
  - Conjunctival haemorrhage [Recovering/Resolving]
  - Head injury [Recovering/Resolving]
  - Drug abuse [Unknown]
  - Hypotension [Recovering/Resolving]

NARRATIVE: CASE EVENT DATE: 20190106
